FAERS Safety Report 4960458-6 (Version None)
Quarter: 2006Q2

REPORT INFORMATION
  Report Type: 
  Country: None (occurrence: None)
  Receive Date: 20060403
  Receipt Date: 20060130
  Transmission Date: 20061013
  Serious: Yes (Hospitalization)
  Sender: FDA-Public Use
  Company Number: JP-JPN-A200600414

PATIENT
  Age: 64 Year
  Sex: Male

DRUGS (8)
  1. VALTREX [Suspect]
     Indication: HERPES ZOSTER
     Dosage: 1000MG THREE TIMES PER DAY
     Route: 048
     Dates: start: 20060126, end: 20060128
  2. PERSANTIN [Concomitant]
     Dosage: 300MG PER DAY
     Route: 048
  3. BLOPRESS [Concomitant]
     Indication: HYPERTENSION
     Dosage: 4MG PER DAY
     Route: 048
  4. ZANTAC [Concomitant]
     Indication: GASTRITIS
     Dosage: 300MG PER DAY
     Route: 048
  5. LASIX [Concomitant]
     Dosage: 80MG PER DAY
     Route: 048
     Dates: start: 20051007
  6. PREDONINE [Concomitant]
     Dosage: 7.5MG PER DAY
     Route: 048
     Dates: start: 20050928
  7. LIPITOR [Concomitant]
     Dosage: 10MG PER DAY
     Route: 048
     Dates: start: 20051126
  8. ASPARA K [Concomitant]
     Dosage: 600MG PER DAY
     Route: 048
     Dates: start: 20051213

REACTIONS (6)
  - DECREASED ACTIVITY [None]
  - DECREASED APPETITE [None]
  - DEPRESSED LEVEL OF CONSCIOUSNESS [None]
  - ENCEPHALOPATHY [None]
  - MOVEMENT DISORDER [None]
  - NERVOUS SYSTEM DISORDER [None]
